FAERS Safety Report 8906983 (Version 2)
Quarter: 2012Q4

REPORT INFORMATION
  Report Type: 
  Country: US (occurrence: US)
  Receive Date: 20121114
  Receipt Date: 20121203
  Transmission Date: 20130627
  Serious: Yes (Other)
  Sender: FDA-Public Use
  Company Number: US-ASTRAZENECA-2012SE84667

PATIENT
  Age: 76 Year
  Sex: Male
  Weight: 78.9 kg

DRUGS (12)
  1. PRILOSEC OTC [Suspect]
     Indication: GASTROOESOPHAGEAL REFLUX DISEASE
     Route: 048
     Dates: start: 2002, end: 20121101
  2. PRILOSEC [Suspect]
     Route: 048
  3. TOPROL XL [Suspect]
     Route: 048
  4. LISINOPRIL [Suspect]
     Route: 048
  5. METFORMIN [Concomitant]
  6. AVODART [Concomitant]
  7. FLOMAX [Concomitant]
  8. COLACE [Concomitant]
  9. D3 [Concomitant]
  10. COQ 10 [Concomitant]
  11. FISH OIL [Concomitant]
  12. ZOCOR [Concomitant]
     Indication: BLOOD CHOLESTEROL INCREASED

REACTIONS (5)
  - Teeth brittle [Not Recovered/Not Resolved]
  - Polyp [Unknown]
  - Type 2 diabetes mellitus [Unknown]
  - Hypertension [Unknown]
  - Blood cholesterol increased [Unknown]
